FAERS Safety Report 19367442 (Version 2)
Quarter: 2021Q2

REPORT INFORMATION
  Report Type: Spontaneous
  Country: US (occurrence: US)
  Receive Date: 20210603
  Receipt Date: 20210610
  Transmission Date: 20210717
  Serious: No
  Sender: FDA-Public Use
  Company Number: US-PFIZER INC-2021199515

PATIENT
  Age: 63 Year
  Sex: Male

DRUGS (3)
  1. LIPITOR [Concomitant]
     Active Substance: ATORVASTATIN CALCIUM
     Indication: HYPERLIPIDAEMIA
     Dosage: 10 MG, 1X/DAY
  2. VENLAFAXINE HCL [Suspect]
     Active Substance: VENLAFAXINE HYDROCHLORIDE
     Indication: BACK PAIN
     Dosage: 112.5 MG, 1X/DAY (THREE CAPSULES BY MOUTH ONCE DAILY)
     Route: 048
     Dates: start: 2012, end: 2012
  3. VENLAFAXINE HCL [Suspect]
     Active Substance: VENLAFAXINE HYDROCHLORIDE
     Dosage: 250 MG, 1X/DAY
     Dates: start: 2012, end: 2012

REACTIONS (5)
  - Dysuria [Recovered/Resolved]
  - Ejaculation failure [Recovered/Resolved]
  - Off label use [Unknown]
  - Anorgasmia [Recovered/Resolved]
  - Prescribed overdose [Unknown]

NARRATIVE: CASE EVENT DATE: 2012
